FAERS Safety Report 9258061 (Version 1)
Quarter: 2013Q1

REPORT INFORMATION
  Report Type: Spontaneous
  Country: US (occurrence: None)
  Receive Date: 20121212
  Receipt Date: 20121212
  Transmission Date: 20140127
  Serious: No
  Sender: FDA-Public Use
  Company Number: 1207USA008836

PATIENT
  Age: 53 Year
  Sex: Male
  Weight: 63.5 kg

DRUGS (8)
  1. VICTRELIS (BOCEPREVIR) CAPSULE, 200MG [Suspect]
     Indication: HEPATITIS C
     Route: 048
     Dates: start: 20120109
  2. PEGINTRON (PEGINTERFERON ALFA-2B) POWDER FOR INJECTION [Suspect]
     Indication: HEPATITIS C
     Route: 058
     Dates: start: 20120109
  3. RIBAVIRIN [Suspect]
     Route: 048
     Dates: start: 20120109
  4. ALPRAZOLAM (ALPRAZOLAM) [Concomitant]
  5. MEGESTROL ACETATE (MEGESTROL ACETATE) [Concomitant]
  6. METHADONE HCL (METHADONE HYDROCHLORIDE) [Concomitant]
  7. ASCORBIC ACID (ASCORBIC ACID) [Concomitant]
  8. PROCRIT [Concomitant]

REACTIONS (7)
  - Blood count abnormal [None]
  - Anaemia [None]
  - Alopecia [None]
  - Neutropenia [None]
  - Anxiety [None]
  - Fatigue [None]
  - Decreased appetite [None]
